FAERS Safety Report 9454181 (Version 1)
Quarter: 2013Q3

REPORT INFORMATION
  Report Type: Spontaneous
  Country: US (occurrence: None)
  Receive Date: 20130807
  Receipt Date: 20130807
  Transmission Date: 20140515
  Serious: Yes (Other)
  Sender: FDA-Public Use
  Company Number: 2013SGN00449

PATIENT
  Age: 16 Year
  Sex: Female
  Weight: 55.8 kg

DRUGS (2)
  1. BRENTUXIMAB VEDOLIN [Suspect]
     Indication: HODGKIN^S DISEASE
     Dosage: 100 MG, QCYCLEM INTRAVENOUS
     Route: 042
     Dates: start: 20130624, end: 20130624
  2. GEMCITABINE (GEMCITABINE) [Suspect]
     Indication: HODGKIN^S DISEASE
     Dosage: 1000 MG/M2, QCYCLE, INTRAVENOUS
     Route: 042
     Dates: start: 20130624, end: 20130701

REACTIONS (2)
  - Alanine aminotransferase increased [None]
  - Aspartate aminotransferase increased [None]
